FAERS Safety Report 6334996-8 (Version None)
Quarter: 2009Q3

REPORT INFORMATION
  Report Type: 
  Country: None (occurrence: None)
  Receive Date: 20090831
  Receipt Date: 20090819
  Transmission Date: 20100115
  Serious: Yes (Other)
  Sender: FDA-Public Use
  Company Number: US-PFIZER INC-2009238925

PATIENT
  Sex: Male
  Weight: 114.3 kg

DRUGS (3)
  1. LIPITOR [Suspect]
     Indication: HYPERLIPIDAEMIA
     Dosage: 10 MG, 1X/DAY
     Route: 048
     Dates: start: 20081208
  2. NEXIUM [Concomitant]
  3. AVODART [Concomitant]

REACTIONS (3)
  - ANGIOEDEMA [None]
  - RASH [None]
  - URTICARIA [None]
